FAERS Safety Report 9644186 (Version 4)
Quarter: 2014Q3

REPORT INFORMATION
  Report Type: Report from Study
  Country: FR (occurrence: FR)
  Receive Date: 20131024
  Receipt Date: 20140704
  Transmission Date: 20150326
  Serious: Yes (Hospitalization)
  Sender: FDA-Public Use
  Company Number: FR-ROCHE-1272843

PATIENT
  Age: 14 Year
  Sex: Female
  Weight: 45 kg

DRUGS (6)
  1. VINCRISTINE [Suspect]
     Active Substance: VINCRISTINE
     Indication: NEOPLASM MALIGNANT
     Dosage: LAST DOSE PRIOR TO CARDIAC FAILURE AND FEBRILE APLASIA: 02/SEP/2013
     Route: 042
     Dates: start: 20130802
  2. BEVACIZUMAB [Suspect]
     Active Substance: BEVACIZUMAB
     Indication: NEOPLASM MALIGNANT
     Dosage: LAST DOSE PRIOR TO CARDIAC FAILURE AND FEBRILE APLASIA: 26/AUG/2013
     Route: 042
     Dates: start: 20130802, end: 20130904
  3. ACTINOMYCIN D [Suspect]
     Active Substance: DACTINOMYCIN
     Indication: NEOPLASM MALIGNANT
     Dosage: LAST DOSE PRIOR TO CARDIAC FAILURE AND FEBRILE APLASIA: 26/AUG/2013
     Route: 042
     Dates: start: 20130802
  4. IFOSFAMIDE. [Suspect]
     Active Substance: IFOSFAMIDE
     Indication: NEOPLASM MALIGNANT
     Dosage: 3 G/M2, LAST DOSE PRIOR TO CARDIAC FAILURE AND FEBRILE APLASIA: 27/AUG/2013
     Route: 042
     Dates: start: 20130802
  5. DOXORUBICIN [Suspect]
     Active Substance: DOXORUBICIN
     Indication: NEOPLASM MALIGNANT
     Dosage: LAST DOSE PRIOR TO CARDIAC FAILURE AND FEBRILE APLASIA: 27/AUG/2013
     Route: 042
     Dates: start: 20130802, end: 20130827
  6. BACTRIM [Concomitant]
     Active Substance: SULFAMETHOXAZOLE\TRIMETHOPRIM
     Route: 065
     Dates: start: 20130802

REACTIONS (2)
  - Febrile bone marrow aplasia [Recovered/Resolved]
  - Cardiac failure [Not Recovered/Not Resolved]

NARRATIVE: CASE EVENT DATE: 20130902
